FAERS Safety Report 10070903 (Version 3)
Quarter: 2014Q2

REPORT INFORMATION
  Report Type: Spontaneous
  Country: US (occurrence: US)
  Receive Date: 20140410
  Receipt Date: 20140502
  Transmission Date: 20141212
  Serious: Yes (Hospitalization)
  Sender: FDA-Public Use
  Company Number: US-INCYTE CORPORATION-2014IN000897

PATIENT
  Age: 70 Year
  Sex: Male

DRUGS (4)
  1. JAKAFI [Suspect]
     Dosage: 20 MG, BID
     Route: 048
     Dates: start: 20111230
  2. ALLOPURINOL [Concomitant]
     Dosage: 100 MG
  3. FOLIC ACID [Concomitant]
     Dosage: 1 MG
  4. OMEGA 3-6-9                        /01333901/ [Concomitant]
     Dosage: 1200 MG, UNK

REACTIONS (2)
  - Squamous cell carcinoma of head and neck [Recovering/Resolving]
  - Metastases to thyroid [Recovering/Resolving]
